FAERS Safety Report 6851390-1 (Version None)
Quarter: 2010Q3

REPORT INFORMATION
  Report Type: 
  Country: None (occurrence: None)
  Receive Date: 20100717
  Receipt Date: 20080120
  Transmission Date: 20110219
  Serious: No
  Sender: FDA-Public Use
  Company Number: US-PFIZER INC-2008005136

PATIENT
  Sex: Female
  Weight: 66.818 kg

DRUGS (14)
  1. CHANTIX [Suspect]
     Indication: SMOKING CESSATION THERAPY
     Dates: start: 20080114
  2. NORVASC [Concomitant]
  3. LIPITOR [Concomitant]
  4. NEURONTIN [Concomitant]
  5. ADDERALL 10 [Concomitant]
  6. METHADONE HCL [Concomitant]
  7. ATIVAN [Concomitant]
  8. PLAVIX [Concomitant]
  9. ACETYLSALICYLIC ACID [Concomitant]
  10. GLIPIZIDE [Concomitant]
  11. SYNTHROID [Concomitant]
  12. PROTONIX [Concomitant]
  13. MOBIC [Concomitant]
  14. COMBIVENT [Concomitant]

REACTIONS (6)
  - DEPRESSION [None]
  - DIZZINESS [None]
  - DRUG INEFFECTIVE [None]
  - FEELING ABNORMAL [None]
  - INSOMNIA [None]
  - SOMNOLENCE [None]
